FAERS Safety Report 9789912 (Version 2)
Quarter: 2014Q2

REPORT INFORMATION
  Report Type: Report from Study
  Country: ES (occurrence: ES)
  Receive Date: 20131231
  Receipt Date: 20140421
  Transmission Date: 20141212
  Serious: Yes (Other)
  Sender: FDA-Public Use
  Company Number: ES-MPIJNJ-2013JNJ001435

PATIENT
  Sex: 0

DRUGS (5)
  1. VELCADE [Suspect]
     Indication: PLASMA CELL MYELOMA
     Dosage: 1.3 MG/M2, UNK
     Route: 042
     Dates: start: 20120508, end: 20120918
  2. BENDAMUSTINE [Suspect]
     Indication: PLASMA CELL MYELOMA
     Dosage: 90 MG/M2, UNK
     Route: 042
     Dates: start: 20120508, end: 20120904
  3. PREDNISONE [Suspect]
     Indication: PLASMA CELL MYELOMA
     Dosage: 100 MG, UNK
     Route: 048
     Dates: start: 20120508, end: 20120831
  4. LENOGRASTIM [Concomitant]
     Dosage: UNK
     Dates: start: 20121026, end: 20121031
  5. PLERIXAFOR [Concomitant]
     Dosage: UNK
     Dates: start: 20121031

REACTIONS (2)
  - Blood stem cell harvest failure [Recovered/Resolved]
  - Drug interaction [Unknown]
